FAERS Safety Report 7130138-X (Version None)
Quarter: 2010Q4

REPORT INFORMATION
  Report Type: 
  Country: None (occurrence: None)
  Receive Date: 20101201
  Receipt Date: 20101117
  Transmission Date: 20110411
  Serious: Yes (Other)
  Sender: FDA-Public Use
  Company Number: IN-RANBAXY-2010RR-37596

PATIENT
  Age: 39 Year
  Sex: Female

DRUGS (4)
  1. SERTRALINE HYDROCHLORIDE [Suspect]
     Indication: PANIC ATTACK
     Dosage: 25 MG, UNK
  2. SERTRALINE HYDROCHLORIDE [Suspect]
     Dosage: 50 MG, UNK
  3. PAROXETINE HCL [Suspect]
     Indication: PANIC ATTACK
     Dosage: 12.5 MG, UNK
  4. CLONAZEPAM [Concomitant]
     Indication: PANIC ATTACK
     Dosage: 1.5 MG, UNK

REACTIONS (2)
  - CROSS SENSITIVITY REACTION [None]
  - RASH [None]
